FAERS Safety Report 4332722-5 (Version None)
Quarter: 2004Q1

REPORT INFORMATION
  Report Type: 
  Country: None (occurrence: None)
  Receive Date: 20040330
  Receipt Date: 20040317
  Transmission Date: 20041129
  Serious: Yes (Hospitalization, Other)
  Sender: FDA-Public Use
  Company Number: US-JNJFOC-20031100788

PATIENT
  Age: 77 Year
  Sex: Male
  Weight: 80.2867 kg

DRUGS (18)
  1. REMICADE [Suspect]
     Indication: RHEUMATOID ARTHRITIS
     Dosage: RECEIVED APPROXIMATELY THREE INFUSIONS
     Dates: start: 20021031
  2. MORPHINE [Suspect]
     Indication: PAIN
  3. LIPITOR [Concomitant]
  4. MIACALCIN [Concomitant]
  5. BUMEX [Concomitant]
  6. SODIUM CHLORIDE [Concomitant]
  7. FOLIC ACID [Concomitant]
  8. LOTENSIN [Concomitant]
  9. FLOMAX [Concomitant]
  10. OXYCONTIN [Concomitant]
  11. NORVASC [Concomitant]
  12. HYDROCODONE (HYDROCODONE) [Concomitant]
  13. PREDNISONE [Concomitant]
  14. CALTRATE (CALCIUM CARBONATE) [Concomitant]
  15. PLAQUENIL [Concomitant]
  16. MAGIC MOUTH WASH (ANTISEPTICS) [Concomitant]
  17. PHENERGAN [Suspect]
     Indication: DRUG USE FOR UNKNOWN INDICATION
  18. OXYCOTIN (OXYCODONE HYDROCHLORIDE) [Suspect]
     Indication: PAIN

REACTIONS (25)
  - ACID FAST STAIN POSITIVE [None]
  - AGGRESSION [None]
  - ANOREXIA [None]
  - ASPIRATION [None]
  - CATHETER RELATED COMPLICATION [None]
  - COMPRESSION FRACTURE [None]
  - CONFUSIONAL STATE [None]
  - DEEP VEIN THROMBOSIS [None]
  - DEHYDRATION [None]
  - DEPRESSED LEVEL OF CONSCIOUSNESS [None]
  - DYSPHAGIA [None]
  - GASTRITIS [None]
  - GASTROENTERITIS HELICOBACTER [None]
  - HYPERTENSION [None]
  - IMPAIRED HEALING [None]
  - INCONTINENCE [None]
  - LETHARGY [None]
  - LUNG INFILTRATION [None]
  - MEDICATION ERROR [None]
  - MYOCARDIAL ISCHAEMIA [None]
  - NECROTISING GRANULOMATOUS LYMPHADENITIS [None]
  - PAIN [None]
  - PARAESTHESIA [None]
  - PYREXIA [None]
  - URINARY TRACT INFECTION [None]
